FAERS Safety Report 6819205-5 (Version None)
Quarter: 2010Q3

REPORT INFORMATION
  Report Type: 
  Country: None (occurrence: None)
  Receive Date: 20100707
  Receipt Date: 20100629
  Transmission Date: 20110219
  Serious: Yes (Hospitalization)
  Sender: FDA-Public Use
  Company Number: FR-WYE-G06334110

PATIENT
  Sex: Female

DRUGS (8)
  1. EFFEXOR XR [Suspect]
     Indication: DEPRESSION
     Route: 048
     Dates: start: 20080101
  2. TARKA [Concomitant]
     Indication: HYPERTENSION
     Route: 048
     Dates: start: 20080101
  3. TAHOR [Concomitant]
     Dosage: 10 MG STRENGTH; DOSE UNKNOWN
     Route: 048
     Dates: start: 20060101
  4. ISOPTIN [Concomitant]
     Indication: HYPERTENSION
     Route: 048
  5. PERINDOPRIL [Concomitant]
     Indication: HYPERTENSION
     Route: 048
  6. INIPOMP [Concomitant]
     Route: 048
  7. PREVISCAN [Suspect]
     Dosage: 20 MG STRENGTH; DOSE UNKNOWN
     Route: 048
     Dates: start: 20080101, end: 20091128
  8. FUROSEMIDE [Concomitant]
     Indication: HYPERTENSION
     Route: 048

REACTIONS (3)
  - ABDOMINAL PAIN [None]
  - INTERNATIONAL NORMALISED RATIO INCREASED [None]
  - MUSCLE HAEMORRHAGE [None]
